FAERS Safety Report 16063512 (Version 3)
Quarter: 2019Q4

REPORT INFORMATION
  Report Type: Spontaneous
  Country: US (occurrence: US)
  Receive Date: 20190312
  Receipt Date: 20191126
  Transmission Date: 20200122
  Serious: Yes (Other)
  Sender: FDA-Public Use
  Company Number: US-LEXICON PHARMACEUTICALS, INC-19-1606-00263

PATIENT
  Sex: Female

DRUGS (7)
  1. CITALOPRAM [Concomitant]
     Active Substance: CITALOPRAM HYDROBROMIDE
  2. IMITREX [Concomitant]
     Active Substance: SUMATRIPTAN SUCCINATE
  3. AFINITOR [Concomitant]
     Active Substance: EVEROLIMUS
  4. IMODIUM A-D [Concomitant]
     Active Substance: LOPERAMIDE HYDROCHLORIDE
  5. TELOTRISTAT ETHYL [Suspect]
     Active Substance: TELOTRISTAT ETHYL
     Indication: CARCINOID TUMOUR
     Route: 048
     Dates: start: 20180314
  6. DICLOFENAC [Concomitant]
     Active Substance: DICLOFENAC
  7. SOMATOSTATIN [Concomitant]
     Active Substance: SOMATOSTATIN

REACTIONS (5)
  - Abdominal discomfort [Unknown]
  - Joint swelling [Unknown]
  - Peripheral swelling [Unknown]
  - Cyst removal [Unknown]
  - Tumour excision [Unknown]
